FAERS Safety Report 6182040-8 (Version None)
Quarter: 2009Q2

REPORT INFORMATION
  Report Type: 
  Country: None (occurrence: None)
  Receive Date: 20090507
  Receipt Date: 20090427
  Transmission Date: 20091009
  Serious: Yes (Death)
  Sender: FDA-Public Use
  Company Number: GB-ABBOTT-09P-167-0565704-00

PATIENT

DRUGS (7)
  1. HUMIRA [Suspect]
     Indication: RHEUMATOID ARTHRITIS
     Route: 050
     Dates: start: 20080320
  2. METHOTREXATE [Concomitant]
     Indication: RHEUMATOID ARTHRITIS
     Route: 048
     Dates: start: 20050801
  3. FOLIC ACID [Concomitant]
     Indication: PROPHYLAXIS
     Route: 048
     Dates: start: 20050801
  4. FOLIC ACID [Concomitant]
     Indication: ADVERSE DRUG REACTION
  5. ACETAMINOPHEN W/ CODEINE [Concomitant]
     Indication: PAIN
     Dosage: 30/500
     Route: 048
     Dates: start: 20050101
  6. OMEPRAZOLE [Concomitant]
     Indication: PROPHYLAXIS AGAINST GASTROINTESTINAL ULCER
     Route: 048
     Dates: start: 20070101
  7. AMITRIPTLINE HYDROCHLORIDE TAB [Concomitant]
     Indication: PAIN
     Route: 048
     Dates: start: 20070101

REACTIONS (2)
  - PNEUMONIA [None]
  - STAPHYLOCOCCAL INFECTION [None]
